FAERS Safety Report 20198159 (Version 2)
Quarter: 2022Q2

REPORT INFORMATION
  Report Type: Spontaneous
  Country: AU (occurrence: AU)
  Receive Date: 20211217
  Receipt Date: 20220628
  Transmission Date: 20220720
  Serious: Yes (Other)
  Sender: FDA-Public Use
  Company Number: AU-GSKCCFAPAC-Case-01377482_AE-52950

PATIENT

DRUGS (1)
  1. NUCALA [Suspect]
     Active Substance: MEPOLIZUMAB
     Indication: Product used for unknown indication
     Dosage: UNK
     Dates: start: 201807

REACTIONS (4)
  - Retinal tear [Unknown]
  - Vitreous detachment [Unknown]
  - Vitreous haemorrhage [Unknown]
  - Retinal haemorrhage [Unknown]
